FAERS Safety Report 17885086 (Version 3)
Quarter: 2020Q4

REPORT INFORMATION
  Report Type: Spontaneous
  Country: US (occurrence: US)
  Receive Date: 20200611
  Receipt Date: 20201221
  Transmission Date: 20210113
  Serious: Yes (Hospitalization, Other)
  Sender: FDA-Public Use
  Company Number: US-SA-2016SA057413

PATIENT

DRUGS (10)
  1. PANCRELIPASE. [Concomitant]
     Active Substance: PANCRELIPASE
     Dosage: UNK UNK,UNK
  2. SUCRALFATE. [Concomitant]
     Active Substance: SUCRALFATE
     Dosage: 1 MG,QID
  3. CAPRELSA [Suspect]
     Active Substance: VANDETANIB
     Indication: THYROID CANCER
     Dosage: 200 MG,QD
     Route: 048
     Dates: start: 20111026
  4. CALCITRIOL. [Concomitant]
     Active Substance: CALCITRIOL
     Dosage: UNK UNK,UNK
  5. LORATADINE. [Concomitant]
     Active Substance: LORATADINE
     Dosage: 10 MG,QD
  6. OCTREOTIDE ACETATE. [Concomitant]
     Active Substance: OCTREOTIDE ACETATE
     Dosage: UNK UNK,UNK
  7. CALCIUM CITRATE [Concomitant]
     Active Substance: CALCIUM CITRATE
     Dosage: UNK UNK,UNK
  8. INSULIN [Concomitant]
     Active Substance: INSULIN NOS
     Dosage: UNK UNK,UNK
  9. ALBUTEROL SULFATE. [Concomitant]
     Active Substance: ALBUTEROL SULFATE
     Dosage: UNK UNK,UNK
  10. LIOTHYRONINE SODIUM. [Concomitant]
     Active Substance: LIOTHYRONINE SODIUM
     Dosage: UNK UNK,UNK

REACTIONS (9)
  - Dyspnoea at rest [Unknown]
  - Surgery [Unknown]
  - Hypoaesthesia [Unknown]
  - Nausea [Unknown]
  - COVID-19 [Unknown]
  - Rash [Unknown]
  - Oral pain [Recovering/Resolving]
  - Paraesthesia [Unknown]
  - Vision blurred [Unknown]

NARRATIVE: CASE EVENT DATE: 20111101
